FAERS Safety Report 5716019-4 (Version None)
Quarter: 2008Q2

REPORT INFORMATION
  Report Type: 
  Country: None (occurrence: None)
  Receive Date: 20080424
  Receipt Date: 20080416
  Transmission Date: 20081010
  Serious: Yes (Death)
  Sender: FDA-Public Use
  Company Number: US-ELI_LILLY_AND_COMPANY-US200804004257

PATIENT
  Age: 70 Year
  Sex: Male

DRUGS (2)
  1. XIGRIS [Suspect]
     Dates: start: 20071001
  2. INSULIN HUMAN [Concomitant]

REACTIONS (3)
  - HAEMOGLOBIN ABNORMAL [None]
  - RENAL FAILURE [None]
  - VOMITING [None]
